FAERS Safety Report 7672805-5 (Version None)
Quarter: 2011Q3

REPORT INFORMATION
  Report Type: 
  Country: None (occurrence: None)
  Receive Date: 20110809
  Receipt Date: 20110802
  Transmission Date: 20111222
  Serious: Yes (Other)
  Sender: FDA-Public Use
  Company Number: US-US-EMD SERONO, INC.-7050291

PATIENT
  Sex: Female

DRUGS (2)
  1. REBIF [Suspect]
     Indication: PRODUCT USED FOR UNKNOWN INDICATION
     Route: 058
     Dates: start: 20110127, end: 20110310
  2. REBIF [Suspect]
     Route: 058
     Dates: end: 20110601

REACTIONS (5)
  - NEUTROPHIL COUNT ABNORMAL [None]
  - FATIGUE [None]
  - GAIT DISTURBANCE [None]
  - WHITE BLOOD CELL COUNT DECREASED [None]
  - URINARY TRACT INFECTION [None]
